FAERS Safety Report 8513418-2 (Version None)
Quarter: 2012Q3

REPORT INFORMATION
  Report Type: 
  Country: None (occurrence: None)
  Receive Date: 20120717
  Receipt Date: 20120706
  Transmission Date: 20120928
  Serious: Yes (Other)
  Sender: FDA-Public Use
  Company Number: US-BIOGENIDEC-2012BI021607

PATIENT
  Age: 34 Year
  Sex: Male

DRUGS (1)
  1. AVONEX [Suspect]
     Indication: MULTIPLE SCLEROSIS
     Route: 030
     Dates: start: 20120607

REACTIONS (16)
  - MEMORY IMPAIRMENT [None]
  - OEDEMA PERIPHERAL [None]
  - SLUGGISHNESS [None]
  - HYPOAESTHESIA [None]
  - ALOPECIA [None]
  - DYSARTHRIA [None]
  - MOBILITY DECREASED [None]
  - DEPRESSION [None]
  - TREMOR [None]
  - MULTIPLE SCLEROSIS RELAPSE [None]
  - FATIGUE [None]
  - MYOSITIS [None]
  - COGNITIVE DISORDER [None]
  - STRESS [None]
  - DECREASED APPETITE [None]
  - PAIN [None]
